FAERS Safety Report 13429508 (Version 1)
Quarter: 2017Q2

REPORT INFORMATION
  Report Type: Spontaneous
  Country: JP (occurrence: JP)
  Receive Date: 20170411
  Receipt Date: 20170411
  Transmission Date: 20170830
  Serious: Yes (Other)
  Sender: FDA-Public Use
  Company Number: JP-SANTEN-201700572

PATIENT
  Age: 74 Year
  Sex: Female

DRUGS (4)
  1. CRAVIT [Suspect]
     Active Substance: LEVOFLOXACIN
     Indication: SUPERINFECTION BACTERIAL
     Dosage: UNK, QID
  2. PIMARICIN [Concomitant]
     Active Substance: NATAMYCIN
     Indication: FUNGAL INFECTION
     Dosage: UNK, QID
  3. ITRACONAZOLE. [Concomitant]
     Active Substance: ITRACONAZOLE
     Indication: FUNGAL INFECTION
  4. VFEND [Concomitant]
     Active Substance: VORICONAZOLE
     Indication: FUNGAL INFECTION
     Dosage: EVERY HOUR

REACTIONS (3)
  - Drug ineffective [Unknown]
  - Anterior chamber inflammation [Recovered/Resolved]
  - Keratitis [Recovered/Resolved]
